FAERS Safety Report 26214640 (Version 1)
Quarter: 2025Q4

REPORT INFORMATION
  Report Type: Spontaneous
  Country: US (occurrence: US)
  Receive Date: 20251230
  Receipt Date: 20251230
  Transmission Date: 20260117
  Serious: No
  Sender: ELI LILLY AND COMPANY
  Company Number: US-ELI_LILLY_AND_COMPANY-US202512020820

PATIENT
  Age: 46 Year
  Sex: Female

DRUGS (4)
  1. ZEPBOUND [Suspect]
     Active Substance: TIRZEPATIDE
     Indication: Migraine
     Dosage: 10 MG, UNKNOWN
     Route: 065
     Dates: start: 20251004
  2. ZEPBOUND [Suspect]
     Active Substance: TIRZEPATIDE
     Indication: Migraine
     Dosage: 10 MG, UNKNOWN
     Route: 065
     Dates: start: 20251004
  3. ZEPBOUND [Suspect]
     Active Substance: TIRZEPATIDE
     Indication: Weight control
  4. ZEPBOUND [Suspect]
     Active Substance: TIRZEPATIDE
     Indication: Weight control

REACTIONS (1)
  - Nausea [Not Recovered/Not Resolved]

NARRATIVE: CASE EVENT DATE: 20251004
